FAERS Safety Report 13778025 (Version 2)
Quarter: 2017Q3

REPORT INFORMATION
  Report Type: Spontaneous
  Country: CA (occurrence: CA)
  Receive Date: 20170721
  Receipt Date: 20170823
  Transmission Date: 20171127
  Serious: Yes (Hospitalization, Other)
  Sender: FDA-Public Use
  Company Number: CA-AMGEN-CANSP2017107326

PATIENT
  Age: 66 Year
  Sex: Female

DRUGS (9)
  1. HCQ [Concomitant]
     Active Substance: HYDROXYCHLOROQUINE SULFATE
     Dosage: UNK
  2. DEXAMETHASONE. [Concomitant]
     Active Substance: DEXAMETHASONE
     Indication: DRUG HYPERSENSITIVITY
     Dosage: UNK
  3. ENBREL [Suspect]
     Active Substance: ETANERCEPT
     Indication: RHEUMATOID ARTHRITIS
     Dosage: 50 MG, QWK
     Route: 058
     Dates: start: 2006, end: 2017
  4. MELOXICAM. [Concomitant]
     Active Substance: MELOXICAM
     Dosage: UNK
  5. MTX [Concomitant]
     Active Substance: METHOTREXATE SODIUM
     Indication: RHEUMATOID ARTHRITIS
     Dosage: 20 MG, QWK
     Dates: start: 1997
  6. NEXIUM [Concomitant]
     Active Substance: ESOMEPRAZOLE MAGNESIUM
     Dosage: UNK
  7. FRAGMIN [Concomitant]
     Active Substance: DALTEPARIN SODIUM
     Dosage: 75000 IU, QD FOR THREE MONTHS
  8. BENADRYL [Concomitant]
     Active Substance: DIPHENHYDRAMINE HYDROCHLORIDE
     Indication: DRUG HYPERSENSITIVITY
     Dosage: UNK
  9. GOLD [Concomitant]
     Active Substance: GOLD
     Dosage: UNK

REACTIONS (3)
  - Breast cancer [Recovering/Resolving]
  - Ejection fraction decreased [Unknown]
  - Deep vein thrombosis [Unknown]

NARRATIVE: CASE EVENT DATE: 201703
